FAERS Safety Report 13061361 (Version 2)
Quarter: 2016Q4

REPORT INFORMATION
  Report Type: Spontaneous
  Country: FR (occurrence: FR)
  Receive Date: 20161226
  Receipt Date: 20161229
  Transmission Date: 20170207
  Serious: Yes (Hospitalization)
  Sender: FDA-Public Use
  Company Number: FR-ACCORD-046807

PATIENT
  Age: 72 Year
  Sex: Male

DRUGS (14)
  1. KARDEGIC [Concomitant]
     Active Substance: ASPIRIN LYSINE
     Dosage: 75 MG?AT NOON
  2. BISOPROLOL [Concomitant]
     Active Substance: BISOPROLOL
     Dosage: 5 MG?1 DF IN THE MORNING AND 1DF IN THE EVENING
  3. GAVISCON [Concomitant]
     Active Substance: ALUMINUM HYDROXIDE\MAGNESIUM CARBONATE
     Dosage: IN CASE OF NEED
  4. CISPLATIN MYLAN [Concomitant]
     Active Substance: CISPLATIN
     Indication: TRANSITIONAL CELL CARCINOMA
     Dosage: REINTRODUCED WITH NO RECURRENCE OF DERMO-HYPODERMITIS
     Route: 042
     Dates: start: 20161013
  5. MACROGOL 4000 [Concomitant]
     Active Substance: POLYETHYLENE GLYCOL 4000
     Dosage: IN CASE OF NEED
  6. METFORMIN [Concomitant]
     Active Substance: METFORMIN HYDROCHLORIDE
     Dosage: (1 DF IN THE MORNING AND 1DF IN THE EVENING), INTRODUCED 3 DAYS PRIOR TO THIS REPORT.
  7. XATRAL LP [Concomitant]
     Active Substance: ALFUZOSIN
     Dosage: 10 MG?IN THE EVENING
  8. DOLIPRANE [Concomitant]
     Active Substance: ACETAMINOPHEN
     Dosage: IN CASE OF NEED
  9. GEMCITABINE ACCORD [Suspect]
     Active Substance: GEMCITABINE HYDROCHLORIDE
     Indication: TRANSITIONAL CELL CARCINOMA
     Dosage: STRENGTH: 2000 MG??ON 13-OCT-2016: CYCLE1 DAY1?ON 20-OCT-2016 : C1 D8
     Route: 042
     Dates: start: 20161013, end: 20161020
  10. ATORVASTATIN [Concomitant]
     Active Substance: ATORVASTATIN
     Dosage: IN THE EVENING?40 MG
  11. PERINDOPRIL/PERINDOPRIL ERBUMINE [Concomitant]
     Dosage: 10 MG?1 DF IN THE MORNING
  12. FUROSEMIDE. [Concomitant]
     Active Substance: FUROSEMIDE
     Dosage: 40 MG?IN THE MORNING
  13. LERCAN [Concomitant]
     Active Substance: LERCANIDIPINE
     Dosage: 20 MG?1 DF IN THE MORNING
  14. OMEPRAZOLE. [Concomitant]
     Active Substance: OMEPRAZOLE
     Dosage: 20MG?IN THE EVENING

REACTIONS (1)
  - Cutaneous vasculitis [Recovered/Resolved]

NARRATIVE: CASE EVENT DATE: 20161025
